FAERS Safety Report 11122014 (Version 1)
Quarter: 2015Q2

REPORT INFORMATION
  Report Type: Spontaneous
  Country: US (occurrence: None)
  Receive Date: 20150518
  Receipt Date: 20150518
  Transmission Date: 20150821
  Serious: Yes (Hospitalization)
  Sender: FDA-Public Use
  Company Number: None

PATIENT
  Age: 74 Year
  Sex: Male
  Weight: 82.5 kg

DRUGS (2)
  1. CETUXIMAB [Suspect]
     Active Substance: CETUXIMAB
     Indication: HEAD AND NECK CANCER
     Dosage: 400 + 250MG/M2, IV J5, 12 F2,9.17, 23 M9, 15,23
     Route: 042
  2. ERIBULIN [Suspect]
     Active Substance: ERIBULIN
     Indication: NEOPLASM MALIGNANT
     Dosage: 1.4, 1.0, 0.7MG/M2, IV JAN 5, 12, FEB 17, 23, MAR9, 16
     Route: 042

REACTIONS (4)
  - Respiratory failure [None]
  - Chronic obstructive pulmonary disease [None]
  - Decreased appetite [None]
  - Malnutrition [None]

NARRATIVE: CASE EVENT DATE: 20150413
